FAERS Safety Report 6356599-1 (Version None)
Quarter: 2009Q3

REPORT INFORMATION
  Report Type: 
  Country: None (occurrence: None)
  Receive Date: 20090910
  Receipt Date: 20090910
  Transmission Date: 20100115
  Serious: Yes (Hospitalization)
  Sender: FDA-Public Use
  Company Number: None

PATIENT
  Sex: Female
  Weight: 71.9 kg

DRUGS (1)
  1. VISIPAQUE [Suspect]
     Indication: ARTERIOGRAM CAROTID
     Dosage: 130ML X1 IV BOLUS
     Route: 040
     Dates: start: 20090805, end: 20090805

REACTIONS (2)
  - ANAPHYLACTIC REACTION [None]
  - RESPIRATORY ARREST [None]
